FAERS Safety Report 23835321 (Version 2)
Quarter: 2024Q4

REPORT INFORMATION
  Report Type: Spontaneous
  Country: PL (occurrence: PL)
  Receive Date: 20240509
  Receipt Date: 20241025
  Transmission Date: 20250114
  Serious: Yes (Other)
  Sender: GILEAD
  Company Number: PL-GILEAD-2024-0671515

PATIENT
  Sex: Female

DRUGS (3)
  1. TRODELVY [Suspect]
     Active Substance: SACITUZUMAB GOVITECAN-HZIY
     Indication: Triple negative breast cancer
     Dosage: UNK
     Route: 065
     Dates: start: 202406
  2. TRODELVY [Suspect]
     Active Substance: SACITUZUMAB GOVITECAN-HZIY
     Dosage: CYCLE II
     Route: 065
  3. ZOLEDRONIC ACID [Concomitant]
     Active Substance: ZOLEDRONIC ACID
     Dosage: 4 MG SCHEDULED EVERY 3 MONTHS

REACTIONS (3)
  - Metastases to spine [Unknown]
  - Neutropenia [Unknown]
  - Diarrhoea [Recovering/Resolving]
